FAERS Safety Report 5427982-3 (Version None)
Quarter: 2007Q3

REPORT INFORMATION
  Report Type: 
  Country: None (occurrence: None)
  Receive Date: 20070828
  Receipt Date: 20070821
  Transmission Date: 20080115
  Serious: Yes (Other)
  Sender: FDA-Public Use
  Company Number: US-ABBOTT-07P-163-0378455-00

PATIENT
  Age: 4 Month
  Sex: Male
  Weight: 5.7 kg

DRUGS (5)
  1. SEVOFLURANE [Suspect]
     Indication: ANAESTHESIA
     Dosage: 0.8-2%
  2. PROPOFOL [Suspect]
     Indication: ANAESTHESIA
     Dosage: CONTINUOUS INFUSION, 175-200 MCG/KG/MIN
  3. NITROUS OXIDE [Suspect]
     Indication: ANAESTHESIA
  4. OXYGEN [Suspect]
     Indication: ANAESTHESIA
     Dosage: NOT REPORTED
  5. FLUIDS [Concomitant]
     Indication: FLUID REPLACEMENT
     Dosage: NOT REPORTED
     Route: 042

REACTIONS (3)
  - HYPOTENSION [None]
  - OXYGEN SATURATION DECREASED [None]
  - VENTRICULAR FIBRILLATION [None]
